FAERS Safety Report 19684341 (Version 1)
Quarter: 2021Q3

REPORT INFORMATION
  Report Type: Spontaneous
  Country: TW (occurrence: TW)
  Receive Date: 20210811
  Receipt Date: 20210811
  Transmission Date: 20211014
  Serious: Yes (Other)
  Sender: FDA-Public Use
  Company Number: TW-JNJFOC-20210807784

PATIENT
  Age: 56 Year
  Sex: Female

DRUGS (2)
  1. REGAINE 2% SOLUTION [Suspect]
     Active Substance: MINOXIDIL
     Indication: ALOPECIA
     Dosage: CANNOT PROVIDE ONCE DAILY
     Route: 065
  2. FERROUS [IRON] [Concomitant]
     Active Substance: IRON
     Indication: PRODUCT USED FOR UNKNOWN INDICATION
     Route: 065

REACTIONS (2)
  - Hypotension [Recovered/Resolved]
  - Inappropriate schedule of product administration [Unknown]
